FAERS Safety Report 8734991 (Version 2)
Quarter: 2012Q4

REPORT INFORMATION
  Report Type: 
  Country: US (occurrence: US)
  Receive Date: 20120821
  Receipt Date: 20121015
  Transmission Date: 20130627
  Serious: Yes (Hospitalization, Other)
  Sender: FDA-Public Use
  Company Number: US-GILEAD-2012-0059910

PATIENT
  Sex: Female

DRUGS (3)
  1. LETAIRIS [Suspect]
     Indication: PRODUCT USED FOR UNKNOWN INDICATION
     Dosage: 10 UNK, UNK
     Route: 048
     Dates: start: 20120419
  2. LETAIRIS [Suspect]
     Dosage: 5 mg, UNK
     Route: 048
     Dates: start: 20120413
  3. TYVASO [Suspect]

REACTIONS (6)
  - Systemic lupus erythematosus [Unknown]
  - Chest pain [Unknown]
  - Malaise [Unknown]
  - Pain [Unknown]
  - Respiratory tract infection [Unknown]
  - Headache [Unknown]
